FAERS Safety Report 9685911 (Version 1)
Quarter: 2013Q4

REPORT INFORMATION
  Report Type: Spontaneous
  Country: US (occurrence: US)
  Receive Date: 20131113
  Receipt Date: 20131113
  Transmission Date: 20140711
  Serious: No
  Sender: FDA-Public Use
  Company Number: US-ALLERGAN-1312874US

PATIENT
  Age: 62 Year
  Sex: Female

DRUGS (4)
  1. COMBIGAN[R] [Suspect]
     Indication: OCULAR HYPERTENSION
     Dosage: 1 GTT, BID
     Route: 047
     Dates: start: 20130821, end: 20130821
  2. SUGAR PILL [Concomitant]
     Indication: PRODUCT USED FOR UNKNOWN INDICATION
  3. THYROID PILL [Concomitant]
     Indication: PRODUCT USED FOR UNKNOWN INDICATION
  4. BLOOD PRESSURE PILL [Concomitant]
     Indication: PRODUCT USED FOR UNKNOWN INDICATION

REACTIONS (4)
  - Hypoaesthesia eye [Recovering/Resolving]
  - Eye discharge [Recovering/Resolving]
  - Lacrimation increased [Recovering/Resolving]
  - Headache [Recovering/Resolving]
